FAERS Safety Report 25836915 (Version 1)
Quarter: 2025Q3

REPORT INFORMATION
  Report Type: Spontaneous
  Country: CN (occurrence: CN)
  Receive Date: 20250923
  Receipt Date: 20250923
  Transmission Date: 20251021
  Serious: Yes (Other)
  Sender: PFIZER
  Company Number: CN-PFIZER INC-PV202500113124

PATIENT
  Age: 23 Year
  Sex: Male

DRUGS (3)
  1. BENEFIX [Suspect]
     Active Substance: COAGULATION FACTOR IX RECOMBINANT HUMAN\ISOPROPYL ALCOHOL
     Indication: Factor IX deficiency
     Dosage: 2000 IU (20 IU/KG), TWICE/WEEK
     Dates: start: 2025, end: 2025
  2. BENEFIX [Suspect]
     Active Substance: COAGULATION FACTOR IX RECOMBINANT HUMAN\ISOPROPYL ALCOHOL
     Indication: Prophylaxis
     Dosage: 2000IU, EVERY DAY (QD) X 3 DAYS (D)
     Dates: start: 202509, end: 2025
  3. BENEFIX [Suspect]
     Active Substance: COAGULATION FACTOR IX RECOMBINANT HUMAN\ISOPROPYL ALCOHOL
     Dosage: 2000IU EACH TIME, ONCE EVERY TWELVE HOURS
     Route: 040

REACTIONS (6)
  - Tooth disorder [Unknown]
  - Haemarthrosis [Unknown]
  - Intra-abdominal haemorrhage [Unknown]
  - Mouth haemorrhage [Unknown]
  - Pain [Not Recovered/Not Resolved]
  - Joint range of motion decreased [Unknown]

NARRATIVE: CASE EVENT DATE: 20250901
